FAERS Safety Report 7259188-X (Version None)
Quarter: 2011Q1

REPORT INFORMATION
  Report Type: 
  Country: None (occurrence: None)
  Receive Date: 20110129
  Receipt Date: 20100622
  Transmission Date: 20110831
  Serious: No
  Sender: FDA-Public Use
  Company Number: US-ABBOTT-10P-163-0653827-00

PATIENT
  Sex: Female
  Weight: 65.83 kg

DRUGS (6)
  1. METHOTREXATE [Concomitant]
     Indication: PRODUCT USED FOR UNKNOWN INDICATION
  2. VITAMIN B COMPLEX CAP [Concomitant]
     Indication: PRODUCT USED FOR UNKNOWN INDICATION
  3. FOLIC ACID [Concomitant]
     Indication: PRODUCT USED FOR UNKNOWN INDICATION
  4. CELEBREX [Concomitant]
     Indication: PRODUCT USED FOR UNKNOWN INDICATION
  5. HUMIRA [Suspect]
     Indication: JUVENILE ARTHRITIS
     Route: 058
     Dates: start: 20091101, end: 20100101
  6. HUMIRA [Suspect]
     Dates: start: 20100101

REACTIONS (4)
  - RHEUMATOID ARTHRITIS [None]
  - FATIGUE [None]
  - ARTHRALGIA [None]
  - DRUG EFFECT DECREASED [None]
